FAERS Safety Report 6334993-2 (Version None)
Quarter: 2009Q3

REPORT INFORMATION
  Report Type: 
  Country: None (occurrence: None)
  Receive Date: 20090831
  Receipt Date: 20090818
  Transmission Date: 20100115
  Serious: Yes (Hospitalization, Other)
  Sender: FDA-Public Use
  Company Number: US-PFIZER INC-2009250406

PATIENT
  Sex: Female
  Weight: 83 kg

DRUGS (11)
  1. GEODON [Suspect]
     Indication: AGITATION
     Dosage: 20 MG, SINGLE
     Dates: start: 20090803, end: 20090803
  2. GEODON [Suspect]
     Dosage: 60 MG, 1X/DAY
     Route: 048
  3. PERCOCET [Concomitant]
     Dosage: 5/325 MG
  4. VALIUM [Concomitant]
     Dosage: UNK
  5. FLOVENT [Concomitant]
     Dosage: 44 MG, 2X/DAY
  6. FORADIL [Concomitant]
     Dosage: 12 UG, 2X/DAY
  7. SPIRIVA [Concomitant]
     Dosage: 18 UG, 1X/DAY
  8. VALSARTAN [Concomitant]
     Dosage: 160 MG, 1X/DAY
  9. HYDROCHLOROTHIAZIDE [Concomitant]
     Dosage: 25 MG, 1X/DAY
  10. LOVENOX [Suspect]
     Dosage: 40 MG, 1X/DAY
     Route: 058
  11. ROCEPHIN [Concomitant]
     Dosage: 1 G, 1X/DAY
     Route: 042

REACTIONS (7)
  - AGITATION [None]
  - BLOOD GLUCOSE INCREASED [None]
  - CONFUSIONAL STATE [None]
  - DISORIENTATION [None]
  - DRUG ADMINISTRATION ERROR [None]
  - HEART RATE INCREASED [None]
  - URINARY TRACT INFECTION [None]
